FAERS Safety Report 17857706 (Version 2)
Quarter: 2021Q4

REPORT INFORMATION
  Report Type: Spontaneous
  Country: CA (occurrence: None)
  Receive Date: 20200604
  Receipt Date: 20211118
  Transmission Date: 20220303
  Serious: Yes (Hospitalization)
  Sender: FDA-Public Use
  Company Number: CA-ROCHE-2613062

PATIENT
  Age: 33 Year
  Sex: Female

DRUGS (5)
  1. DIAZEPAM [Suspect]
     Active Substance: DIAZEPAM
     Indication: Product used for unknown indication
     Route: 065
  2. BUPROPION [Suspect]
     Active Substance: BUPROPION
     Indication: Product used for unknown indication
     Route: 065
  3. BUPROPION [Suspect]
     Active Substance: BUPROPION
     Route: 065
  4. BUPROPION [Suspect]
     Active Substance: BUPROPION
     Route: 065
  5. QUETIAPINE FUMARATE [Suspect]
     Active Substance: QUETIAPINE FUMARATE
     Indication: Product used for unknown indication
     Route: 065

REACTIONS (12)
  - Altered state of consciousness [Recovered/Resolved]
  - Blood chloride decreased [Recovered/Resolved]
  - Blood osmolarity decreased [Recovered/Resolved]
  - Blood sodium decreased [Recovered/Resolved]
  - Blood sodium increased [Recovered/Resolved]
  - Coma scale abnormal [Recovered/Resolved]
  - Cortisol increased [Recovered/Resolved]
  - Cushing^s syndrome [Recovered/Resolved]
  - Depressed level of consciousness [Recovered/Resolved]
  - Inappropriate antidiuretic hormone secretion [Recovered/Resolved]
  - Urine osmolarity increased [Recovered/Resolved]
  - Urine sodium increased [Recovered/Resolved]
